FAERS Safety Report 5985858-7 (Version None)
Quarter: 2008Q4

REPORT INFORMATION
  Report Type: 
  Country: None (occurrence: None)
  Receive Date: 20081209
  Receipt Date: 20080401
  Transmission Date: 20090506
  Serious: No
  Sender: FDA-Public Use
  Company Number: US-AMGEN-KDL272496

PATIENT
  Sex: Female

DRUGS (2)
  1. ENBREL [Suspect]
     Indication: RHEUMATOID ARTHRITIS
     Route: 058
     Dates: start: 20071207
  2. METHOTREXATE [Concomitant]
     Route: 048
     Dates: start: 20060101

REACTIONS (8)
  - BLISTER [None]
  - BODY TEMPERATURE INCREASED [None]
  - BURNING SENSATION [None]
  - FALL [None]
  - PAIN IN EXTREMITY [None]
  - RASH [None]
  - SKIN LACERATION [None]
  - UPPER RESPIRATORY TRACT INFECTION [None]
